FAERS Safety Report 4981979-6 (Version None)
Quarter: 2006Q2

REPORT INFORMATION
  Report Type: 
  Country: None (occurrence: None)
  Receive Date: 20060425
  Receipt Date: 20050324
  Transmission Date: 20061013
  Serious: Yes (Hospitalization, Disabling)
  Sender: FDA-Public Use
  Company Number: US-MERCK-0503USA04615

PATIENT
  Age: 63 Year
  Sex: Male
  Weight: 77 kg

DRUGS (6)
  1. VIOXX [Suspect]
     Indication: BACK PAIN
     Route: 048
     Dates: start: 19990101, end: 20040901
  2. VIOXX [Suspect]
     Route: 048
     Dates: start: 19990101, end: 20040901
  3. VIOXX [Suspect]
     Indication: ARTHRITIS
     Route: 048
     Dates: start: 19990101, end: 20040901
  4. VIOXX [Suspect]
     Route: 048
     Dates: start: 19990101, end: 20040901
  5. [COMPOSITION UNSPECIFIED] [Concomitant]
     Indication: BLOOD PRESSURE
     Route: 065
  6. CELEXA [Concomitant]
     Route: 065

REACTIONS (7)
  - CEREBROVASCULAR ACCIDENT [None]
  - DYSPNOEA EXERTIONAL [None]
  - GASTRIC ULCER [None]
  - INJURY [None]
  - SINUS TACHYCARDIA [None]
  - SYNCOPE [None]
  - ULCER HAEMORRHAGE [None]
